FAERS Safety Report 5996799-3 (Version None)
Quarter: 2008Q4

REPORT INFORMATION
  Report Type: 
  Country: None (occurrence: None)
  Receive Date: 20081212
  Receipt Date: 20081027
  Transmission Date: 20090506
  Serious: No
  Sender: FDA-Public Use
  Company Number: US-ABBOTT-08P-163-0483886-00

PATIENT
  Sex: Female
  Weight: 102.15 kg

DRUGS (4)
  1. HUMIRA [Suspect]
     Indication: PSORIASIS
     Route: 058
     Dates: start: 20081009, end: 20081009
  2. HUMIRA [Suspect]
     Route: 058
  3. ZAGRID [Concomitant]
     Indication: DYSPEPSIA
     Route: 048
  4. HYDROCHLOROTHIAZIDE [Concomitant]
     Indication: HYPERTENSION
     Route: 048
     Dates: start: 20081001

REACTIONS (2)
  - HYPERTENSION [None]
  - PROCEDURAL COMPLICATION [None]
